FAERS Safety Report 8035815-4 (Version None)
Quarter: 2011Q4

REPORT INFORMATION
  Report Type: 
  Country: None (occurrence: None)
  Receive Date: 20111202
  Receipt Date: 20110805
  Transmission Date: 20120403
  Serious: Yes (Disabling)
  Sender: FDA-Public Use
  Company Number: PHEH2011US00868

PATIENT
  Age: 20 Year
  Sex: Female
  Weight: 113.4 kg

DRUGS (6)
  1. ABILIFY [Concomitant]
  2. FANAPT [Suspect]
     Indication: SCHIZOAFFECTIVE DISORDER
     Dosage: 1 MG, BID, ORAL
     Route: 048
     Dates: start: 20110317, end: 20110710
  3. WELLBUTRIN [Concomitant]
  4. LITHIUM CARBONATE [Concomitant]
  5. VISTARIL [Concomitant]
  6. PERPHENAZINE [Concomitant]

REACTIONS (12)
  - DYSKINESIA [None]
  - GAIT DISTURBANCE [None]
  - BALLISMUS [None]
  - TARDIVE DYSKINESIA [None]
  - PROTRUSION TONGUE [None]
  - CHOREOATHETOSIS [None]
  - DYSTONIA [None]
  - MUSCULOSKELETAL DISCOMFORT [None]
  - DYSARTHRIA [None]
  - TONGUE DISORDER [None]
  - GRIMACING [None]
  - MENTAL DISORDER [None]
